FAERS Safety Report 9216036 (Version 1)
Quarter: 2013Q2

REPORT INFORMATION
  Report Type: Spontaneous
  Country: US (occurrence: None)
  Receive Date: 20130402
  Receipt Date: 20130402
  Transmission Date: 20140414
  Serious: Yes (Other)
  Sender: FDA-Public Use
  Company Number: 1654670

PATIENT
  Age: 62 Year
  Sex: Female

DRUGS (1)
  1. PACLITACEL [Suspect]
     Indication: LUNG ADENOCARCINOMA
     Dosage: 175 MG/M2

REACTIONS (1)
  - Colon adenoma [None]
